FAERS Safety Report 5104711-4 (Version None)
Quarter: 2006Q3

REPORT INFORMATION
  Report Type: 
  Country: None (occurrence: None)
  Receive Date: 20060914
  Receipt Date: 20060908
  Transmission Date: 20061208
  Serious: Yes (Other)
  Sender: FDA-Public Use
  Company Number: 2006UW17756

PATIENT
  Age: 29 Year
  Sex: Female

DRUGS (1)
  1. PRILOSEC OTC [Suspect]
     Route: 048
     Dates: start: 20060101, end: 20060101

REACTIONS (4)
  - DOCUMENTED HYPERSENSITIVITY TO ADMINISTERED DRUG [None]
  - DRUG PRESCRIBING ERROR [None]
  - HYPERSENSITIVITY [None]
  - MEDICATION ERROR [None]
